FAERS Safety Report 12292924 (Version 3)
Quarter: 2016Q2

REPORT INFORMATION
  Report Type: Report from Study
  Country: US (occurrence: US)
  Receive Date: 20160421
  Receipt Date: 20160519
  Transmission Date: 20160815
  Serious: Yes (Hospitalization, Other)
  Sender: FDA-Public Use
  Company Number: US-AMGEN-USASL2016045464

PATIENT
  Age: 72 Year
  Sex: Male
  Weight: 93.42 kg

DRUGS (9)
  1. NEXIUM [Concomitant]
     Active Substance: ESOMEPRAZOLE MAGNESIUM
     Dosage: 1 DF, QD
     Route: 048
  2. CIALIS [Concomitant]
     Active Substance: TADALAFIL
     Dosage: 10 MG, QD
     Route: 048
  3. COQ10 [Concomitant]
     Active Substance: UBIDECARENONE
     Dosage: 100 MG, QD
     Route: 048
  4. TOPROL XL [Concomitant]
     Active Substance: METOPROLOL SUCCINATE
     Indication: CORONARY ARTERY DISEASE
     Dosage: 25 MG, QD
     Route: 048
  5. TOPROL XL [Concomitant]
     Active Substance: METOPROLOL SUCCINATE
     Indication: HYPERTENSION
  6. LISINOPRIL AND HYDROCHLOROTHIAZIDE [Concomitant]
     Active Substance: HYDROCHLOROTHIAZIDE\LISINOPRIL
     Indication: CORONARY ARTERY DISEASE
     Dosage: 0.5 DF, QD
     Route: 048
  7. REPATHA [Suspect]
     Active Substance: EVOLOCUMAB
     Indication: DYSLIPIDAEMIA
     Dosage: 140 MG, TWICE A MONTH
     Route: 058
     Dates: start: 20150914
  8. LISINOPRIL AND HYDROCHLOROTHIAZIDE [Concomitant]
     Active Substance: HYDROCHLOROTHIAZIDE\LISINOPRIL
     Indication: HYPERTENSION
  9. DIAZEPAM. [Concomitant]
     Active Substance: DIAZEPAM
     Dosage: 5 MG, BID
     Route: 048

REACTIONS (12)
  - Back pain [Recovered/Resolved]
  - Granuloma [Unknown]
  - Vomiting [Recovered/Resolved]
  - Chronic obstructive pulmonary disease [Unknown]
  - Dizziness [Recovered/Resolved]
  - Pain [Unknown]
  - Mass [Unknown]
  - Nausea [Recovered/Resolved]
  - Pulmonary mass [Unknown]
  - Emphysema [Unknown]
  - Vascular calcification [Unknown]
  - Low density lipoprotein decreased [Unknown]

NARRATIVE: CASE EVENT DATE: 20160302
